FAERS Safety Report 6572005-6 (Version None)
Quarter: 2010Q1

REPORT INFORMATION
  Report Type: 
  Country: None (occurrence: None)
  Receive Date: 20100102
  Receipt Date: 20100119
  Transmission Date: 20100710
  Serious: Yes (Hospitalization)
  Sender: FDA-Public Use
  Company Number: DSA_42366_2010

PATIENT
  Age: 95 Year
  Sex: Female

DRUGS (2)
  1. CARDIZEM [Suspect]
     Indication: DRUG USE FOR UNKNOWN INDICATION
     Dosage: (DF)
     Dates: start: 20030101, end: 20030101
  2. AMIODARONE HCL [Concomitant]

REACTIONS (4)
  - ARRHYTHMIA [None]
  - BRADYCARDIA [None]
  - LUNG DISORDER [None]
  - PRURITUS [None]
